FAERS Safety Report 20820889 (Version 2)
Quarter: 2022Q2

REPORT INFORMATION
  Report Type: Report from Study
  Country: US (occurrence: US)
  Receive Date: 20220512
  Receipt Date: 20220607
  Transmission Date: 20220721
  Serious: No
  Sender: FDA-Public Use
  Company Number: US-NOVARTISTESTPH-NVSC2022US108766

PATIENT
  Sex: Male
  Weight: 107.03 kg

DRUGS (1)
  1. DIOVAN [Suspect]
     Active Substance: VALSARTAN
     Indication: Hypertension
     Dosage: UNK
     Route: 048

REACTIONS (6)
  - Blood cholesterol increased [Unknown]
  - Sleep apnoea syndrome [Unknown]
  - Snoring [Unknown]
  - Tonsillar hypertrophy [Unknown]
  - Low density lipoprotein increased [Unknown]
  - Blood pressure increased [Unknown]
